FAERS Safety Report 15905138 (Version 1)
Quarter: 2019Q1

REPORT INFORMATION
  Report Type: Spontaneous
  Country: US (occurrence: US)
  Receive Date: 20190204
  Receipt Date: 20190204
  Transmission Date: 20190417
  Serious: Yes (Other)
  Sender: FDA-Public Use
  Company Number: US-BAYER-2019-020688

PATIENT
  Age: 13 Year
  Sex: Female

DRUGS (2)
  1. MIDOL COMPLETE [Suspect]
     Active Substance: ACETAMINOPHEN\CAFFEINE\PYRILAMINE MALEATE
     Indication: PAIN
  2. MIDOL COMPLETE [Suspect]
     Active Substance: ACETAMINOPHEN\CAFFEINE\PYRILAMINE MALEATE
     Indication: MUSCLE SPASMS
     Dosage: 30 TABS
     Dates: start: 20190127

REACTIONS (3)
  - Vomiting [Unknown]
  - Suicidal ideation [Not Recovered/Not Resolved]
  - Intentional overdose [Unknown]

NARRATIVE: CASE EVENT DATE: 20190127
